FAERS Safety Report 8274245-7 (Version None)
Quarter: 2012Q2

REPORT INFORMATION
  Report Type: 
  Country: None (occurrence: None)
  Receive Date: 20120411
  Receipt Date: 20120403
  Transmission Date: 20120825
  Serious: Yes (Hospitalization)
  Sender: FDA-Public Use
  Company Number: SG-JNJFOC-20120401959

PATIENT
  Sex: Female
  Weight: 55.7 kg

DRUGS (13)
  1. ACYCLOVIR [Concomitant]
     Indication: HERPES SIMPLEX
     Dates: start: 20111220
  2. CETIRIZINE [Concomitant]
     Indication: PRURITUS
     Dates: start: 20111220
  3. SENNA [Concomitant]
     Indication: CONSTIPATION
     Dates: start: 20111220
  4. COAL TAR [Concomitant]
     Indication: PSORIASIS
     Dates: start: 20111210
  5. STELARA [Suspect]
     Indication: PSORIASIS
     Route: 058
     Dates: start: 20120223
  6. ALL OTHER THERAPEUTIC PRODUCT [Concomitant]
     Indication: PSORIASIS
     Dates: start: 20111220
  7. HYDROXYZINE [Concomitant]
     Indication: PRURITUS
     Dates: start: 20111220
  8. FAMOTIDINE [Concomitant]
     Indication: GASTROINTESTINAL DISORDER THERAPY
     Dates: start: 20111220
  9. BETAMETHASONE CREAM [Concomitant]
     Indication: PSORIASIS
     Dates: start: 20111220
  10. ACITRETIN [Concomitant]
     Indication: PSORIASIS
     Dates: start: 20111220
  11. ACYCLOVIR [Concomitant]
     Indication: HERPES SIMPLEX
     Dates: start: 20111220
  12. ALL OTHER THERAPEUTIC PRODUCT [Concomitant]
     Dates: start: 20111220
  13. STELARA [Suspect]
     Route: 058
     Dates: start: 20111220

REACTIONS (1)
  - PUSTULAR PSORIASIS [None]
